FAERS Safety Report 9664674 (Version 1)
Quarter: 2013Q4

REPORT INFORMATION
  Report Type: Spontaneous
  Country: IT (occurrence: None)
  Receive Date: 20131031
  Receipt Date: 20131031
  Transmission Date: 20140711
  Serious: Yes (Other)
  Sender: FDA-Public Use
  Company Number: AUR-APL-2013-09102

PATIENT
  Age: 8 Year
  Sex: Female

DRUGS (3)
  1. LAMOTRIGINE (LAMOTRIGINE) [Suspect]
     Indication: MYOCLONIC EPILEPSY
  2. TOPIRAMATE [Suspect]
     Indication: MYOCLONIC EPILEPSY
  3. PHENOBARBITAL (PHENOBARBITAL) [Suspect]
     Indication: MYOCLONIC EPILEPSY

REACTIONS (2)
  - Convulsion [None]
  - Drug resistance [None]
